FAERS Safety Report 9455699 (Version 1)
Quarter: 2013Q3

REPORT INFORMATION
  Report Type: Spontaneous
  Country: US (occurrence: US)
  Receive Date: 20130813
  Receipt Date: 20130813
  Transmission Date: 20140515
  Serious: No
  Sender: FDA-Public Use
  Company Number: US-009507513-1307USA015551

PATIENT
  Sex: Female

DRUGS (3)
  1. VICTRELIS [Suspect]
     Dosage: 200 MG, 4 CAPSULES PER DAY
     Route: 048
     Dates: start: 20130620
  2. PEGINTRON [Suspect]
  3. REBETOL [Suspect]

REACTIONS (3)
  - Dyspnoea [Unknown]
  - Anaemia [Unknown]
  - Inappropriate schedule of drug administration [Unknown]
